FAERS Safety Report 20526049 (Version 1)
Quarter: 2022Q1

REPORT INFORMATION
  Report Type: Spontaneous
  Country: FR (occurrence: None)
  Receive Date: 20220228
  Receipt Date: 20220228
  Transmission Date: 20220423
  Serious: Yes (Death, Hospitalization, Other)
  Sender: FDA-Public Use
  Company Number: 2022A083324

PATIENT
  Age: 85 Year
  Sex: Male

DRUGS (3)
  1. DAPAGLIFLOZIN [Suspect]
     Active Substance: DAPAGLIFLOZIN
     Indication: Product used for unknown indication
     Dosage: 10 MG10.0MG UNKNOWN
     Route: 048
  2. FUROSEMIDE [Suspect]
     Active Substance: FUROSEMIDE
     Indication: Product used for unknown indication
     Dosage: UNK
     Route: 065
  3. ENTRESTO [Suspect]
     Active Substance: SACUBITRIL\VALSARTAN
     Indication: Product used for unknown indication
     Dosage: 1 DOSAGE FORM, BID (24/26 MG) (IN THE MORNING AND IN THE EVENING)
     Route: 065

REACTIONS (2)
  - Death [Fatal]
  - Cardiac failure [Unknown]
